FAERS Safety Report 18559657 (Version 1)
Quarter: 2020Q4

REPORT INFORMATION
  Report Type: Spontaneous
  Country: US (occurrence: US)
  Receive Date: 20201129
  Receipt Date: 20201129
  Transmission Date: 20210114
  Serious: No
  Sender: FDA-Public Use
  Company Number: None

PATIENT
  Age: 72 Year
  Sex: Male
  Weight: 94.5 kg

DRUGS (8)
  1. GENERIC STATIN [Concomitant]
  2. AREDS 2 FOR EYE HEALTH [Concomitant]
  3. CARBIDOPA 25MG/LEVODOPA 100MG}TAB [Suspect]
     Active Substance: CARBIDOPA\LEVODOPA
     Indication: PARKINSON^S DISEASE
     Dosage: ?          QUANTITY:1 TABLET(S);?
     Route: 048
     Dates: start: 20201117, end: 20201125
  4. ASPIRIN. [Concomitant]
     Active Substance: ASPIRIN
  5. VITAMIN D3 [Concomitant]
     Active Substance: CHOLECALCIFEROL
  6. OMEGA 3 [Concomitant]
     Active Substance: OMEGA-3 FATTY ACIDS
  7. PILOCARPINE EYE DROPS [Concomitant]
  8. IMMUNE BOOST ESTER-C [Concomitant]

REACTIONS (3)
  - Swelling face [None]
  - Aphonia [None]
  - Blister [None]

NARRATIVE: CASE EVENT DATE: 20201123
